FAERS Safety Report 4874818-5 (Version None)
Quarter: 2006Q1

REPORT INFORMATION
  Report Type: 
  Country: None (occurrence: None)
  Receive Date: 20060109
  Receipt Date: 20041230
  Transmission Date: 20060701
  Serious: Yes (Hospitalization)
  Sender: FDA-Public Use
  Company Number: US-ABBOTT-04P-163-0285072-00

PATIENT
  Sex: Male

DRUGS (4)
  1. OMNICEF [Suspect]
     Indication: OTITIS MEDIA
     Route: 048
     Dates: start: 20041206, end: 20041216
  2. OMNICEF [Suspect]
     Indication: EXTERNAL EAR CELLULITIS
  3. FLOXIN OTIC [Concomitant]
     Indication: OTITIS MEDIA
     Route: 065
  4. LORATADINE [Concomitant]
     Indication: HYPERSENSITIVITY
     Route: 048

REACTIONS (3)
  - CLOSTRIDIAL INFECTION [None]
  - DEHYDRATION [None]
  - DIARRHOEA [None]
